FAERS Safety Report 24091490 (Version 1)
Quarter: 2024Q3

REPORT INFORMATION
  Report Type: Spontaneous
  Country: US (occurrence: None)
  Receive Date: 20240713
  Receipt Date: 20240713
  Transmission Date: 20241016
  Serious: Yes (Hospitalization)
  Sender: Public
  Company Number: None

PATIENT
  Sex: Female
  Weight: 62.5 kg

DRUGS (4)
  1. FLUOROURACIL [Suspect]
     Active Substance: FLUOROURACIL
     Dates: start: 20240401, end: 20240705
  2. IRINOTECAN [Concomitant]
     Active Substance: IRINOTECAN
  3. LEUCOVORIN CALCIUM [Concomitant]
     Active Substance: LEUCOVORIN CALCIUM
  4. OXALIPLATIIN (ELOXATIN) [Concomitant]

REACTIONS (8)
  - Colitis [None]
  - Vomiting [None]
  - Presyncope [None]
  - Leukocytosis [None]
  - Anaemia [None]
  - Blood lactic acid increased [None]
  - Diarrhoea [None]
  - Fatigue [None]

NARRATIVE: CASE EVENT DATE: 20240708
